FAERS Safety Report 10578619 (Version 1)
Quarter: 2014Q4

REPORT INFORMATION
  Report Type: Spontaneous
  Country: US (occurrence: None)
  Receive Date: 20141111
  Receipt Date: 20141111
  Transmission Date: 20150529
  Serious: Yes (Disabling)
  Sender: FDA-Public Use
  Company Number: None

PATIENT
  Age: 60 Year
  Sex: Female
  Weight: 81.65 kg

DRUGS (1)
  1. ESCITALOPRAM [Suspect]
     Active Substance: ESCITALOPRAM OXALATE
     Indication: DEPRESSION
     Dosage: ONCE DAILY TAKEN BY MOUTH
     Route: 048
     Dates: start: 20141110, end: 20141110

REACTIONS (4)
  - Depression [None]
  - Irritability [None]
  - Anxiety [None]
  - Malaise [None]

NARRATIVE: CASE EVENT DATE: 20141110
